FAERS Safety Report 7602303-6 (Version None)
Quarter: 2011Q3

REPORT INFORMATION
  Report Type: 
  Country: None (occurrence: None)
  Receive Date: 20110711
  Receipt Date: 20110627
  Transmission Date: 20111222
  Serious: Yes (Other)
  Sender: FDA-Public Use
  Company Number: JP-MYLANLABS-2011S1013660

PATIENT
  Age: 59 Year
  Sex: Male

DRUGS (2)
  1. MYCOPHENOLATE MEFETIL [Concomitant]
     Indication: RENAL TRANSPLANT
     Dosage: 1500 MG/DAY
     Route: 065
  2. TACROLIMUS [Suspect]
     Indication: RENAL TRANSPLANT
     Dosage: 7 MG/DAY
     Route: 065

REACTIONS (1)
  - THROMBOTIC MICROANGIOPATHY [None]
